FAERS Safety Report 7203126-2 (Version None)
Quarter: 2010Q4

REPORT INFORMATION
  Report Type: 
  Country: None (occurrence: None)
  Receive Date: 20101229
  Receipt Date: 20101223
  Transmission Date: 20110411
  Serious: Yes (Other)
  Sender: FDA-Public Use
  Company Number: UG-ABBOTT-10P-165-0690507-00

PATIENT
  Age: 37 Year
  Sex: Female

DRUGS (4)
  1. ALUVIA TABLETS [Suspect]
     Indication: HIV INFECTION
     Route: 048
     Dates: start: 20101112
  2. RALTEGRAVIR [Concomitant]
     Indication: HIV INFECTION
     Dates: start: 20101112
  3. SEPTRIN [Concomitant]
     Indication: PRODUCT USED FOR UNKNOWN INDICATION
     Dates: start: 20040101
  4. COARTEM [Concomitant]
     Indication: MALARIA
     Dates: start: 20101130, end: 20101202

REACTIONS (5)
  - HYPERSENSITIVITY [None]
  - MALARIA [None]
  - PYREXIA [None]
  - RASH PRURITIC [None]
  - STOMATITIS [None]
